FAERS Safety Report 24750558 (Version 6)
Quarter: 2025Q2

REPORT INFORMATION
  Report Type: Report from Study
  Country: US (occurrence: US)
  Receive Date: 20241218
  Receipt Date: 20250414
  Transmission Date: 20250717
  Serious: Yes (Other)
  Sender: ABBVIE
  Company Number: US-ABBVIE-6050325

PATIENT
  Age: 92 Year
  Sex: Male
  Weight: 77.11 kg

DRUGS (12)
  1. CREON [Suspect]
     Active Substance: PANCRELIPASE AMYLASE\PANCRELIPASE LIPASE\PANCRELIPASE PROTEASE
     Indication: Pancreatic failure
     Route: 048
     Dates: start: 20240912, end: 202410
  2. CREON [Suspect]
     Active Substance: PANCRELIPASE AMYLASE\PANCRELIPASE LIPASE\PANCRELIPASE PROTEASE
     Indication: Pancreatic failure
     Route: 048
  3. CREON [Suspect]
     Active Substance: PANCRELIPASE AMYLASE\PANCRELIPASE LIPASE\PANCRELIPASE PROTEASE
     Indication: Pancreatic failure
     Route: 048
     Dates: start: 20240210
  4. FUROSEMIDE [Concomitant]
     Active Substance: FUROSEMIDE
     Indication: Peripheral swelling
  5. HEPARIN [Concomitant]
     Active Substance: HEPARIN SODIUM
     Indication: Dialysis
  6. HYDROXYZINE [Concomitant]
     Active Substance: HYDROXYZINE HYDROCHLORIDE
     Indication: Hypertension
  7. Phosphorus binder [Concomitant]
     Indication: Dialysis related complication
  8. SODIUM BICARBONATE [Concomitant]
     Active Substance: SODIUM BICARBONATE
     Indication: Product used for unknown indication
  9. NIFEDIPINE [Concomitant]
     Active Substance: NIFEDIPINE
     Indication: Hypertension
  10. CALCIUM [Concomitant]
     Active Substance: CALCIUM
     Indication: Dialysis related complication
  11. HYDRALAZINE [Concomitant]
     Active Substance: HYDRALAZINE HYDROCHLORIDE
     Indication: Hypertension
  12. IRON [Concomitant]
     Active Substance: IRON
     Indication: Dialysis related complication
     Route: 042

REACTIONS (11)
  - Renal failure [Recovering/Resolving]
  - Chest discomfort [Recovered/Resolved]
  - Respiratory disorder [Recovered/Resolved]
  - Incorrect dose administered [Unknown]
  - Coronary artery disease [Recovered/Resolved]
  - Malaise [Recovered/Resolved]
  - Glomerular filtration rate decreased [Recovering/Resolving]
  - Aortic valve incompetence [Recovering/Resolving]
  - Myocardial infarction [Recovered/Resolved]
  - Dialysis [Unknown]
  - Chest pain [Recovered/Resolved]

NARRATIVE: CASE EVENT DATE: 20240101
